FAERS Safety Report 18452463 (Version 1)
Quarter: 2020Q4

REPORT INFORMATION
  Report Type: Spontaneous
  Country: CM (occurrence: CM)
  Receive Date: 20201102
  Receipt Date: 20201102
  Transmission Date: 20210114
  Serious: Yes (Other)
  Sender: FDA-Public Use
  Company Number: CM-GILEAD-2020-0501574

PATIENT
  Age: 65 Year
  Sex: Male

DRUGS (8)
  1. VIREAD [Suspect]
     Active Substance: TENOFOVIR DISOPROXIL FUMARATE
     Indication: HIV INFECTION
     Dosage: UNK
     Route: 065
     Dates: end: 201711
  2. RALTEGRAVIR. [Concomitant]
     Active Substance: RALTEGRAVIR
  3. ABACAVIR. [Concomitant]
     Active Substance: ABACAVIR
  4. VIREAD [Suspect]
     Active Substance: TENOFOVIR DISOPROXIL FUMARATE
     Dosage: UNK
     Route: 065
     Dates: start: 201711, end: 201905
  5. DARUNAVIR;RITONAVIR [Concomitant]
     Active Substance: DARUNAVIR\RITONAVIR
  6. VIREAD [Suspect]
     Active Substance: TENOFOVIR DISOPROXIL FUMARATE
     Dosage: UNK
     Route: 065
     Dates: start: 201908
  7. 3TC [Concomitant]
     Active Substance: LAMIVUDINE
  8. DOLUTEGRAVIR [Concomitant]
     Active Substance: DOLUTEGRAVIR

REACTIONS (3)
  - Drug ineffective [Unknown]
  - Viral load increased [Unknown]
  - Genotype drug resistance test positive [Unknown]
